FAERS Safety Report 6810256-3 (Version None)
Quarter: 2010Q2

REPORT INFORMATION
  Report Type: 
  Country: None (occurrence: None)
  Receive Date: 20100630
  Receipt Date: 20100621
  Transmission Date: 20101027
  Serious: Yes (Hospitalization, Other)
  Sender: FDA-Public Use
  Company Number: US-AMGEN-QUU419620

PATIENT
  Sex: Male

DRUGS (3)
  1. EPOGEN [Suspect]
     Indication: RENAL FAILURE CHRONIC
     Dates: end: 20100601
  2. PHOSPHATE-SANDOZ [Concomitant]
  3. MULTI-VITAMINS [Concomitant]

REACTIONS (3)
  - APLASIA PURE RED CELL [None]
  - HYPOTENSION [None]
  - THERAPEUTIC RESPONSE DECREASED [None]
